FAERS Safety Report 8969946 (Version 2)
Quarter: 2013Q1

REPORT INFORMATION
  Report Type: Spontaneous
  Country: AT (occurrence: AT)
  Receive Date: 20121217
  Receipt Date: 20130207
  Transmission Date: 20140127
  Serious: Yes (Life-Threatening, Hospitalization, Other)
  Sender: FDA-Public Use
  Company Number: AT-B.I. PHARMACEUTICALS,INC./RIDGEFIELD-2012-AP-01109AP

PATIENT
  Age: 79 Year
  Sex: Female
  Weight: 64 kg

DRUGS (6)
  1. PRADAXA [Suspect]
     Indication: ATRIAL FIBRILLATION
     Dosage: 300 MG
     Route: 048
     Dates: start: 201209, end: 201212
  2. CONCOR [Concomitant]
     Dosage: 2.5 MG
     Route: 048
  3. MAGNOSOLV [Concomitant]
     Route: 048
  4. LASIX [Concomitant]
     Dosage: 80 MG
     Route: 048
  5. SIMVASTATIN [Concomitant]
     Dosage: 40 MG
     Route: 048
  6. DIAMICRON [Concomitant]
     Dosage: 60 NR
     Route: 048

REACTIONS (6)
  - Hepatic cirrhosis [Unknown]
  - Blood bilirubin increased [Unknown]
  - Jaundice [Unknown]
  - Nausea [Unknown]
  - Abdominal distension [Unknown]
  - Abdominal pain upper [Unknown]
